FAERS Safety Report 11178770 (Version 3)
Quarter: 2015Q2

REPORT INFORMATION
  Report Type: Spontaneous
  Country: PE (occurrence: PE)
  Receive Date: 20150610
  Receipt Date: 20150626
  Transmission Date: 20150821
  Serious: Yes (Death, Life-Threatening, Hospitalization, Other)
  Sender: FDA-Public Use
  Company Number: PE-ABBVIE-15P-163-1405531-00

PATIENT
  Age: 46 Year
  Sex: Male
  Weight: 69 kg

DRUGS (5)
  1. ATAZANAVIR [Concomitant]
     Active Substance: ATAZANAVIR
     Indication: ANTIRETROVIRAL THERAPY
     Route: 048
     Dates: end: 20150427
  2. ETOPOSIDE PHOSPHATE [Suspect]
     Active Substance: ETOPOSIDE PHOSPHATE
     Indication: ANTIRETROVIRAL THERAPY
     Route: 048
     Dates: start: 20150415, end: 20150421
  3. EMTRICITABINE W/TENOFOVIR DISOPROXIL FUMARATE [Suspect]
     Active Substance: EMTRICITABINE\TENOFOVIR DISOPROXIL
     Indication: ANTIRETROVIRAL THERAPY
     Dosage: 200/300MG
     Route: 048
     Dates: start: 20150415, end: 20150427
  4. COTRIMOXAZOLE [Concomitant]
     Active Substance: SULFAMETHOXAZOLE\TRIMETHOPRIM
     Indication: ANTIFUNGAL PROPHYLAXIS
     Route: 048
     Dates: end: 20150427
  5. RITONAVIR. [Suspect]
     Active Substance: RITONAVIR
     Indication: ANTIRETROVIRAL THERAPY
     Route: 048
     Dates: start: 20150415, end: 20150427

REACTIONS (12)
  - Hypokalaemia [Unknown]
  - Headache [Unknown]
  - Pruritus [Unknown]
  - Disseminated cryptococcosis [Fatal]
  - Device related infection [Unknown]
  - Acute kidney injury [Unknown]
  - Hyperreflexia [Unknown]
  - Immune reconstitution inflammatory syndrome [Unknown]
  - Reflexes abnormal [Unknown]
  - Nausea [Unknown]
  - Vomiting [Unknown]
  - Skin lesion [Unknown]

NARRATIVE: CASE EVENT DATE: 201504
